FAERS Safety Report 8489894-0 (Version None)
Quarter: 2012Q3

REPORT INFORMATION
  Report Type: 
  Country: None (occurrence: None)
  Receive Date: 20120705
  Receipt Date: 20120629
  Transmission Date: 20120928
  Serious: Yes (Life-Threatening, Hospitalization)
  Sender: FDA-Public Use
  Company Number: PHHO2011BR09808

PATIENT
  Sex: Male
  Weight: 89 kg

DRUGS (10)
  1. HYDRALAZINE HYDROCHLORIDE [Concomitant]
     Indication: CARDIAC FAILURE
     Dosage: 25, 8/8 HR
     Route: 048
     Dates: start: 20101011, end: 20110604
  2. ISOSORBIDE DINITRATE [Concomitant]
     Indication: CARDIAC FAILURE
     Dosage: 10, 8/8 HR,
     Route: 048
     Dates: start: 20101011, end: 20110406
  3. ISORDIL [Concomitant]
  4. CARVEDILOL [Concomitant]
     Indication: CARDIAC FAILURE
     Dosage: 37.5 12/12 HR
     Route: 048
     Dates: start: 20090411, end: 20110406
  5. ALLOPURINOL [Suspect]
     Indication: HYPERURICAEMIA
     Dosage: UNK
     Route: 048
     Dates: start: 20091118, end: 20110406
  6. FUROSEMIDE [Concomitant]
     Indication: CARDIAC FAILURE
     Dosage: 40, QD
     Route: 048
     Dates: start: 20090411, end: 20110406
  7. AMIODARONE HCL [Concomitant]
     Indication: ARRHYTHMIA
     Dosage: 200, QD
     Route: 048
     Dates: start: 20090411, end: 20110406
  8. VALSARTAN [Suspect]
     Indication: CARDIAC FAILURE CHRONIC
     Dosage: 200 MG, BID
     Route: 048
     Dates: start: 20110105, end: 20110603
  9. OMEPRAZOLE [Concomitant]
     Indication: ABDOMINAL PAIN UPPER
     Dosage: UNK
     Route: 048
     Dates: start: 20100727
  10. ESPIRONOLACTONE [Concomitant]
     Indication: CARDIAC FAILURE
     Dosage: 25, QD
     Route: 048
     Dates: start: 20090411, end: 20110406

REACTIONS (6)
  - RENAL FAILURE ACUTE [None]
  - CARDIAC FAILURE ACUTE [None]
  - HEPATOTOXICITY [None]
  - ACUTE HEPATIC FAILURE [None]
  - CARDIORENAL SYNDROME [None]
  - ATRIAL FIBRILLATION [None]
